FAERS Safety Report 8320921-7 (Version None)
Quarter: 2012Q2

REPORT INFORMATION
  Report Type: 
  Country: None (occurrence: None)
  Receive Date: 20120430
  Receipt Date: 20120424
  Transmission Date: 20120825
  Serious: Yes (Other)
  Sender: FDA-Public Use
  Company Number: PHHY2010CA88283

PATIENT
  Sex: Female

DRUGS (1)
  1. ZOLEDRONOC ACID [Suspect]
     Indication: OSTEOPOROSIS
     Dosage: UNK UKN, UNK
     Route: 042
     Dates: start: 20101221

REACTIONS (11)
  - APHAGIA [None]
  - ABDOMINAL PAIN UPPER [None]
  - NAUSEA [None]
  - TREMOR [None]
  - WEIGHT DECREASED [None]
  - BONE PAIN [None]
  - CHILLS [None]
  - GAIT DISTURBANCE [None]
  - DIZZINESS [None]
  - MALAISE [None]
  - INSOMNIA [None]
